FAERS Safety Report 17846792 (Version 2)
Quarter: 2021Q3

REPORT INFORMATION
  Report Type: Report from Study
  Country: US (occurrence: US)
  Receive Date: 20200601
  Receipt Date: 20210729
  Transmission Date: 20211014
  Serious: Yes (Hospitalization)
  Sender: FDA-Public Use
  Company Number: US-ROCHE-2585551

PATIENT
  Age: 55 Year
  Sex: Female
  Weight: 134 kg

DRUGS (12)
  1. CYCLOPHOSPHAMIDE;DOXORUBICIN [Suspect]
     Active Substance: CYCLOPHOSPHAMIDE\DOXORUBICIN
     Indication: TRIPLE NEGATIVE BREAST CANCER
     Dosage: DOXORUBICIN/CYCLOPHOSPHAMIDE 151 MG/1500 MG?MOST RECENT DOSE OF DOXORUBICIN/CYCLOPHOSPHAMIDE PRIOR T
     Route: 042
     Dates: start: 20191212
  2. COMPAZINE [Concomitant]
     Active Substance: PROCHLORPERAZINE MALEATE
     Route: 048
     Dates: start: 20190114
  3. PEGFILGRASTIM [Concomitant]
     Active Substance: PEGFILGRASTIM
     Dates: start: 20191017
  4. ZOLOFT [Concomitant]
     Active Substance: SERTRALINE HYDROCHLORIDE
     Dates: start: 20190124
  5. ATIVAN [Concomitant]
     Active Substance: LORAZEPAM
     Route: 048
     Dates: start: 20190919, end: 20200225
  6. COREG [Concomitant]
     Active Substance: CARVEDILOL
     Route: 048
  7. LASIX [Concomitant]
     Active Substance: FUROSEMIDE
     Dates: start: 20200102, end: 20200206
  8. PERCOCET [Concomitant]
     Active Substance: ACETAMINOPHEN\OXYCODONE HYDROCHLORIDE
     Route: 048
     Dates: start: 20190805, end: 20200207
  9. BLINDED ATEZOLIZUMAB [Suspect]
     Active Substance: ATEZOLIZUMAB
     Indication: TRIPLE NEGATIVE BREAST CANCER
     Dosage: THE MOST RECENT DOSE OF ATEZOLIZUMAB/PLACEBO PRIOR TO EVENT ONSET WAS 03?JAN?2020
     Route: 041
     Dates: start: 20190815, end: 20200123
  10. EMLA [Concomitant]
     Active Substance: LIDOCAINE\PRILOCAINE
     Dates: start: 20190814, end: 20200227
  11. CLARITIN [Concomitant]
     Active Substance: LORATADINE
     Route: 048
     Dates: start: 20191017
  12. ZOFRAN [Concomitant]
     Active Substance: ONDANSETRON HYDROCHLORIDE
     Route: 048
     Dates: start: 20191024

REACTIONS (1)
  - Febrile neutropenia [Recovered/Resolved]

NARRATIVE: CASE EVENT DATE: 20200123
